FAERS Safety Report 9730831 (Version 4)
Quarter: 2013Q4

REPORT INFORMATION
  Report Type: Spontaneous
  Country: JP (occurrence: JP)
  Receive Date: 20131203
  Receipt Date: 20131220
  Transmission Date: 20140711
  Serious: Yes (Other)
  Sender: FDA-Public Use
  Company Number: JP-MERCK-1311JPN002002

PATIENT
  Sex: Female

DRUGS (5)
  1. ESLAX [Suspect]
     Indication: NEUROMUSCULAR BLOCKADE
     Dosage: DOSAGE IS UNCERTAIN DURING A DAY
     Route: 042
  2. PROPOFOL [Suspect]
     Indication: INDUCTION OF ANAESTHESIA
     Dosage: DOSAGE IS UNCERTAIN DURING A DAY
     Route: 042
  3. SEVOFLURANE [Suspect]
     Indication: MAINTENANCE OF ANAESTHESIA
     Dosage: 1 DF, UNK
     Route: 055
  4. FERROMIA [Suspect]
     Dosage: 50 MG, BID (PREGNANCY WEEK: 29 WEEKS)
     Route: 048
  5. TOMIRON [Suspect]
     Dosage: 100 MG, TID (PREGNANCY WEEK: 31 WEEKS)
     Route: 048

REACTIONS (2)
  - Stillbirth [Unknown]
  - Maternal exposure during pregnancy [Recovered/Resolved]
